FAERS Safety Report 19182034 (Version 14)
Quarter: 2025Q1

REPORT INFORMATION
  Report Type: Spontaneous
  Country: US (occurrence: US)
  Receive Date: 20210426
  Receipt Date: 20250331
  Transmission Date: 20250409
  Serious: Yes (Life-Threatening, Other)
  Sender: PFIZER
  Company Number: US-PFIZER INC-2021406327

PATIENT
  Age: 81 Year
  Sex: Female
  Weight: 61.23 kg

DRUGS (7)
  1. XELJANZ [Suspect]
     Active Substance: TOFACITINIB CITRATE
     Indication: Rheumatoid arthritis
     Route: 048
  2. XELJANZ [Suspect]
     Active Substance: TOFACITINIB CITRATE
     Indication: Pain
     Dosage: TAKE 1 TABLET BY ORAL ROUTE 2 TIMES EVERY DAY
     Route: 048
  3. XELJANZ [Suspect]
     Active Substance: TOFACITINIB CITRATE
     Indication: Arthralgia
  4. XELJANZ [Suspect]
     Active Substance: TOFACITINIB CITRATE
     Indication: Joint lock
  5. XELJANZ [Suspect]
     Active Substance: TOFACITINIB CITRATE
     Indication: Felty^s syndrome
  6. RETINOL [Concomitant]
     Active Substance: RETINOL
     Indication: Immune system disorder
  7. VITAMINS NOS [Concomitant]
     Active Substance: VITAMINS

REACTIONS (16)
  - Near death experience [Unknown]
  - Neoplasm malignant [Unknown]
  - Infection [Unknown]
  - Impaired healing [Unknown]
  - Memory impairment [Unknown]
  - Hand deformity [Not Recovered/Not Resolved]
  - Gait disturbance [Not Recovered/Not Resolved]
  - Skin laceration [Unknown]
  - Weight decreased [Unknown]
  - Pain [Recovering/Resolving]
  - Mobility decreased [Not Recovered/Not Resolved]
  - Arthralgia [Not Recovered/Not Resolved]
  - Foot deformity [Not Recovered/Not Resolved]
  - Musculoskeletal stiffness [Recovered/Resolved]
  - White blood cell count abnormal [Unknown]
  - Illness [Not Recovered/Not Resolved]

NARRATIVE: CASE EVENT DATE: 20250101
